FAERS Safety Report 4499417-9 (Version None)
Quarter: 2004Q4

REPORT INFORMATION
  Report Type: 
  Country: None (occurrence: None)
  Receive Date: 20040928
  Receipt Date: 20040809
  Transmission Date: 20050328
  Serious: No
  Sender: FDA-Public Use
  Company Number: 04P-163-0269671-00

PATIENT
  Age: 68 Year
  Sex: Female
  Weight: 77.1115 kg

DRUGS (6)
  1. HUMIRA [Suspect]
     Indication: RHEUMATOID ARTHRITIS
     Dosage: 40 MG, 1 IN 2 WK, SUBCUTANEOUS
     Route: 058
     Dates: start: 20040719
  2. PREDNISONE [Concomitant]
  3. ATENOLOL [Concomitant]
  4. PRENIVIL [Concomitant]
  5. ESOMEPRAZOLE [Concomitant]
  6. ULTACET [Concomitant]

REACTIONS (7)
  - ARTHROPOD BITE [None]
  - DRY EYE [None]
  - DRY MOUTH [None]
  - FAECES HARD [None]
  - INFECTED INSECT BITE [None]
  - KERATOCONJUNCTIVITIS SICCA [None]
  - NAUSEA [None]
